FAERS Safety Report 4575730-1 (Version None)
Quarter: 2005Q1

REPORT INFORMATION
  Report Type: 
  Country: None (occurrence: None)
  Receive Date: 20050209
  Receipt Date: 20041222
  Transmission Date: 20050727
  Serious: Yes (Other)
  Sender: FDA-Public Use
  Company Number: US-GLAXOSMITHKLINE-A0538385A

PATIENT
  Age: 74 Year
  Sex: Female
  Weight: 53.2 kg

DRUGS (4)
  1. COMMIT [Suspect]
     Indication: SMOKING CESSATION THERAPY
     Route: 002
     Dates: start: 20040901, end: 20041228
  2. LOTREL [Concomitant]
     Indication: HYPERTENSION
     Route: 048
  3. CELEBREX [Concomitant]
     Indication: ARTHRITIS
     Route: 048
  4. OCUVITE [Concomitant]
     Indication: HYPOVITAMINOSIS
     Route: 048

REACTIONS (1)
  - VISUAL ACUITY REDUCED [None]
